FAERS Safety Report 7681236-3 (Version None)
Quarter: 2011Q3

REPORT INFORMATION
  Report Type: 
  Country: None (occurrence: None)
  Receive Date: 20110812
  Receipt Date: 20110808
  Transmission Date: 20111222
  Serious: Yes (Disabling)
  Sender: FDA-Public Use
  Company Number: JP-ROCHE-796052

PATIENT
  Sex: Female
  Weight: 38 kg

DRUGS (2)
  1. XELODA [Suspect]
     Indication: RECTAL CANCER
     Route: 048
     Dates: start: 20110316, end: 20110316
  2. XELODA [Suspect]
     Route: 048
     Dates: start: 20110329, end: 20110329

REACTIONS (6)
  - HYPOXIC-ISCHAEMIC ENCEPHALOPATHY [None]
  - CARDIO-RESPIRATORY ARREST [None]
  - NAUSEA [None]
  - MALAISE [None]
  - PRINZMETAL ANGINA [None]
  - HEADACHE [None]
